FAERS Safety Report 6204415-0 (Version None)
Quarter: 2009Q2

REPORT INFORMATION
  Report Type: 
  Country: None (occurrence: None)
  Receive Date: 20090527
  Receipt Date: 20090518
  Transmission Date: 20091009
  Serious: Yes (Hospitalization)
  Sender: FDA-Public Use
  Company Number: ES-ELI_LILLY_AND_COMPANY-ES200905004853

PATIENT
  Age: 65 Year
  Sex: Male

DRUGS (9)
  1. FORTEO [Suspect]
     Indication: OSTEOPOROSIS
     Dosage: 20 UG, UNK
     Route: 058
     Dates: start: 20090201, end: 20090515
  2. CLOPIDOGREL [Concomitant]
  3. ATENOLOL [Concomitant]
  4. CARDURA [Concomitant]
     Indication: CARDIAC DISORDER
     Dates: end: 20090515
  5. NEURONTIN [Concomitant]
  6. DIAZEPAM [Concomitant]
  7. ADIRO [Concomitant]
  8. CARDYL [Concomitant]
  9. EZETROL [Concomitant]

REACTIONS (3)
  - CORONARY ARTERY OCCLUSION [None]
  - DIZZINESS [None]
  - LOSS OF CONSCIOUSNESS [None]
